FAERS Safety Report 25239832 (Version 1)
Quarter: 2025Q2

REPORT INFORMATION
  Report Type: Spontaneous
  Country: US (occurrence: None)
  Receive Date: 20250424
  Receipt Date: 20250424
  Transmission Date: 20250716
  Serious: No
  Sender: FDA-CTU
  Company Number: None

PATIENT
  Age: 71 Year
  Sex: Male
  Weight: 98.1 kg

DRUGS (5)
  1. ROSUVASTATIN [Suspect]
     Active Substance: ROSUVASTATIN
     Indication: Blood cholesterol increased
     Dates: start: 20250409, end: 20250422
  2. metoprolol/losartan [Concomitant]
  3. VITAMIN C [Concomitant]
     Active Substance: ASCORBIC ACID
  4. VITAMIN K [Concomitant]
     Active Substance: PHYTONADIONE
  5. MAGNESIUM [Concomitant]
     Active Substance: MAGNESIUM

REACTIONS (10)
  - Headache [None]
  - Nausea [None]
  - Abdominal pain upper [None]
  - Arthralgia [None]
  - Myalgia [None]
  - Eye pain [None]
  - Back pain [None]
  - Glycosylated haemoglobin increased [None]
  - Tremor [None]
  - Therapy interrupted [None]

NARRATIVE: CASE EVENT DATE: 20250422
